FAERS Safety Report 9319249 (Version 2)
Quarter: 2013Q3

REPORT INFORMATION
  Report Type: Spontaneous
  Country: US (occurrence: None)
  Receive Date: 20130524
  Receipt Date: 20130702
  Transmission Date: 20140515
  Serious: Yes (Other)
  Sender: FDA-Public Use
  Company Number: ACO_36259_2013

PATIENT
  Sex: 0

DRUGS (9)
  1. AMPYRA (DALFAMPRIDINE) TABLET, 10 MG [Suspect]
     Indication: PRODUCT USED FOR UNKNOWN INDICATION
     Dates: start: 201207, end: 2012
  2. CYMBALTA (DULOXETINE HYDROCHLORIDE) [Concomitant]
  3. VESICARE (SOLIFENACIN SUCCINATE) [Concomitant]
  4. CLONAZEPAM (CLONAZEPAM) (CLONAZEPAM) [Concomitant]
  5. BACLOFEN (BACLOFEN) [Concomitant]
  6. LIPITOR (ATORVASTATIN CALCIUM) [Concomitant]
  7. ALENDRONATE SODIUM (ALENDRONATE SODIUM) [Concomitant]
  8. PROMETHAZINE (PROMETHAZINE HYDROCHLORIDE) [Concomitant]
  9. LEVOTHYROXINE SODIUM (LEVOTHYROXINE SODIUM( [Concomitant]

REACTIONS (3)
  - Convulsion [None]
  - Urinary tract infection [None]
  - Blood urea abnormal [None]
